FAERS Safety Report 8265903-9 (Version None)
Quarter: 2012Q2

REPORT INFORMATION
  Report Type: 
  Country: None (occurrence: None)
  Receive Date: 20120403
  Receipt Date: 20120326
  Transmission Date: 20120825
  Serious: Yes (Hospitalization)
  Sender: FDA-Public Use
  Company Number: DAV-AE-MTX-12-20

PATIENT
  Age: 15 Year
  Sex: Male

DRUGS (7)
  1. VITAMIN D SUPPLEMENTS [Concomitant]
  2. PROTON PUMP INHIBITOR [Concomitant]
  3. FOLIC ACID [Concomitant]
  4. METHOTREXATE [Suspect]
     Indication: JUVENILE ARTHRITIS
     Dosage: 12.5MG/WK,
  5. PREDNISONE TAB [Concomitant]
  6. HYDROXYCHLOROQUINE SULFATE [Concomitant]
  7. CALCIUM CARBONATE [Concomitant]

REACTIONS (2)
  - BEZOAR [None]
  - ILEUS [None]
